FAERS Safety Report 23069771 (Version 2)
Quarter: 2024Q1

REPORT INFORMATION
  Report Type: Spontaneous
  Country: US (occurrence: US)
  Receive Date: 20231016
  Receipt Date: 20240206
  Transmission Date: 20240409
  Serious: No
  Sender: FDA-Public Use
  Company Number: US-SA-SAC20231009000234

PATIENT
  Age: 67 Year
  Sex: Female
  Weight: 74.8 kg

DRUGS (18)
  1. DUPIXENT [Suspect]
     Active Substance: DUPILUMAB
     Indication: Dermatitis atopic
     Dosage: UNK UNK, 1X
     Route: 058
     Dates: start: 20230927, end: 20230927
  2. DUPIXENT [Suspect]
     Active Substance: DUPILUMAB
     Dosage: 300 MG, QOW
     Route: 058
  3. VITAMIN C [Concomitant]
     Active Substance: ASCORBIC ACID
  4. ALBUTEROL SULFATE [Concomitant]
     Active Substance: ALBUTEROL SULFATE
  5. TRELEGY ELLIPTA [Concomitant]
     Active Substance: FLUTICASONE FUROATE\UMECLIDINIUM BROMIDE\VILANTEROL TRIFENATATE
     Dosage: TRELEGY ELLIPTA 100-62.5 BLST W/DEV
  6. TRAZODONE HCL [Concomitant]
     Active Substance: TRAZODONE HYDROCHLORIDE
  7. VALACYCLOVIR [Concomitant]
     Active Substance: VALACYCLOVIR HYDROCHLORIDE
  8. ATORVASTATIN CALCIUM [Concomitant]
     Active Substance: ATORVASTATIN CALCIUM
  9. AZOPT [Concomitant]
     Active Substance: BRINZOLAMIDE
  10. LUMIGAN [Concomitant]
     Active Substance: BIMATOPROST
  11. FLONASE ALLERGY RELIEF [Concomitant]
     Active Substance: FLUTICASONE PROPIONATE
  12. LEVOTHYROXINE SODIUM [Concomitant]
     Active Substance: LEVOTHYROXINE SODIUM
  13. TYLENOL [Concomitant]
     Active Substance: ACETAMINOPHEN
  14. IBUPROFEN [Concomitant]
     Active Substance: IBUPROFEN
  15. ZYRTEC [Concomitant]
     Active Substance: CETIRIZINE HYDROCHLORIDE
  16. CALCIUM [Concomitant]
     Active Substance: CALCIUM
  17. VITAMINS NOS [Concomitant]
     Active Substance: VITAMINS
  18. PROBIOTICS NOS [Concomitant]
     Active Substance: PROBIOTICS NOS
     Dosage: PROBIOTIC 10B CELL CAPSULE

REACTIONS (5)
  - Discomfort [Unknown]
  - Eye swelling [Unknown]
  - Pruritus [Recovered/Resolved]
  - Oral herpes [Recovered/Resolved]
  - Arthralgia [Unknown]

NARRATIVE: CASE EVENT DATE: 20230101
